FAERS Safety Report 15083523 (Version 4)
Quarter: 2019Q2

REPORT INFORMATION
  Report Type: Report from Study
  Country: US (occurrence: US)
  Receive Date: 20180628
  Receipt Date: 20190401
  Transmission Date: 20190711
  Serious: No
  Sender: FDA-Public Use
  Company Number: US-CLOVIS ONCOLOGY-CLO-2018-000423

PATIENT
  Sex: Female

DRUGS (2)
  1. RUBRACA [Suspect]
     Active Substance: RUCAPARIB CAMSYLATE
     Dosage: 600 MG, BID
     Route: 048
     Dates: start: 20180418
  2. RUBRACA [Suspect]
     Active Substance: RUCAPARIB CAMSYLATE
     Indication: UTERINE CANCER
     Dosage: 600 MG, BID
     Route: 048
     Dates: start: 20180418

REACTIONS (13)
  - Dehydration [Not Recovered/Not Resolved]
  - Abdominal pain upper [Not Recovered/Not Resolved]
  - Dry skin [Not Recovered/Not Resolved]
  - Asthenia [Not Recovered/Not Resolved]
  - Parosmia [Not Recovered/Not Resolved]
  - Photosensitivity reaction [Not Recovered/Not Resolved]
  - Product dose omission [Unknown]
  - Nausea [Not Recovered/Not Resolved]
  - Off label use [Unknown]
  - Alopecia [Not Recovered/Not Resolved]
  - Temperature intolerance [Not Recovered/Not Resolved]
  - Fatigue [Not Recovered/Not Resolved]
  - Arthralgia [Not Recovered/Not Resolved]

NARRATIVE: CASE EVENT DATE: 2018
